FAERS Safety Report 5011154-0 (Version None)
Quarter: 2006Q2

REPORT INFORMATION
  Report Type: 
  Country: None (occurrence: None)
  Receive Date: 20060523
  Receipt Date: 20060508
  Transmission Date: 20061013
  Serious: Yes (Other)
  Sender: FDA-Public Use
  Company Number: HQWYE293911MAY06

PATIENT
  Sex: Female

DRUGS (1)
  1. TRIFEME-28 (LEVONORGESTREL/ETHINYL ESTRADIOL/INERT, TABLET) [Suspect]
     Dosage: 1 TABLET 1X PER 1 DAY ORAL
     Route: 048

REACTIONS (2)
  - METRORRHAGIA [None]
  - PLEURISY [None]
